FAERS Safety Report 16399078 (Version 1)
Quarter: 2019Q2

REPORT INFORMATION
  Report Type: Spontaneous
  Country: US (occurrence: US)
  Receive Date: 20190606
  Receipt Date: 20190606
  Transmission Date: 20190711
  Serious: No
  Sender: FDA-Public Use
  Company Number: US-PERRIGO-19US000216

PATIENT
  Age: 59 Year
  Sex: Female
  Weight: 113.38 kg

DRUGS (3)
  1. EFFEXOR [Concomitant]
     Active Substance: VENLAFAXINE HYDROCHLORIDE
     Indication: DEPRESSION
     Dosage: UNK
     Route: 065
  2. MINIVELLE [Concomitant]
     Active Substance: ESTRADIOL
     Indication: OESTROGEN REPLACEMENT THERAPY
     Dosage: UNK
     Route: 062
  3. MICONAZOLE 3 COMBINATION PACK [Suspect]
     Active Substance: MICONAZOLE NITRATE
     Indication: VULVOVAGINAL MYCOTIC INFECTION
     Dosage: 200 MG, SINGLE
     Route: 067
     Dates: start: 20190107, end: 20190107

REACTIONS (2)
  - Hot flush [Recovered/Resolved]
  - Inappropriate schedule of product administration [Recovered/Resolved]

NARRATIVE: CASE EVENT DATE: 20190107
